FAERS Safety Report 7090214-7 (Version None)
Quarter: 2010Q4

REPORT INFORMATION
  Report Type: 
  Country: None (occurrence: None)
  Receive Date: 20101105
  Receipt Date: 20101105
  Transmission Date: 20110411
  Serious: Yes (Hospitalization)
  Sender: FDA-Public Use
  Company Number: None

PATIENT
  Age: 51 Year
  Sex: Male

DRUGS (10)
  1. ZYVOX [Suspect]
     Indication: STAPHYLOCOCCAL INFECTION
     Dosage: 600MG BID PO
     Route: 048
     Dates: start: 20100508, end: 20100529
  2. ALLOPURINOL [Concomitant]
  3. AMIODARONE [Concomitant]
  4. CALCIUM CARBONATE/VITAMIN D [Concomitant]
  5. LOPID [Concomitant]
  6. THERAGRAN M [Concomitant]
  7. LOVAZA [Concomitant]
  8. PROTONIX [Concomitant]
  9. ANDRODERM [Concomitant]
  10. WARFARIN [Concomitant]

REACTIONS (6)
  - DECREASED APPETITE [None]
  - DIARRHOEA [None]
  - DIZZINESS [None]
  - NAUSEA [None]
  - PALPITATIONS [None]
  - PANCYTOPENIA [None]
